FAERS Safety Report 17710345 (Version 2)
Quarter: 2020Q4

REPORT INFORMATION
  Report Type: Report from Study
  Country: US (occurrence: US)
  Receive Date: 20200427
  Receipt Date: 20201210
  Transmission Date: 20210113
  Serious: No
  Sender: FDA-Public Use
  Company Number: US-SA-2020SA108382

PATIENT

DRUGS (3)
  1. DUPILUMAB [Suspect]
     Active Substance: DUPILUMAB
     Indication: ASTHMA
     Dosage: 300 MG (FREQUENCY: OTHER)
     Route: 058
     Dates: start: 201909
  2. DUPILUMAB [Suspect]
     Active Substance: DUPILUMAB
     Indication: PRODUCT USED FOR UNKNOWN INDICATION
     Dosage: UNK UNK, 1X
     Route: 065
  3. DUPILUMAB [Suspect]
     Active Substance: DUPILUMAB
     Dosage: 300 MG, QOW
     Route: 058

REACTIONS (6)
  - Ocular hyperaemia [Unknown]
  - Rash [Recovered/Resolved]
  - Eczema [Recovered/Resolved]
  - Eye swelling [Unknown]
  - Eyelid margin crusting [Unknown]
  - Purulent discharge [Unknown]
